FAERS Safety Report 16263138 (Version 2)
Quarter: 2019Q2

REPORT INFORMATION
  Report Type: Spontaneous
  Country: US (occurrence: US)
  Receive Date: 20190502
  Receipt Date: 20190623
  Transmission Date: 20190711
  Serious: Yes (Death, Hospitalization)
  Sender: FDA-Public Use
  Company Number: US-BIOGEN-2019BI00729079

PATIENT
  Age: 19 Year
  Sex: Female

DRUGS (1)
  1. SPINRAZA [Suspect]
     Active Substance: NUSINERSEN
     Indication: SPINAL MUSCULAR ATROPHY
     Route: 037

REACTIONS (3)
  - Cardiac arrest [Fatal]
  - Contrast media reaction [Fatal]
  - Influenza [Unknown]

NARRATIVE: CASE EVENT DATE: 20190419
